FAERS Safety Report 7809476-0 (Version None)
Quarter: 2011Q4

REPORT INFORMATION
  Report Type: 
  Country: None (occurrence: None)
  Receive Date: 20111012
  Receipt Date: 20110929
  Transmission Date: 20120403
  Serious: Yes (Hospitalization)
  Sender: FDA-Public Use
  Company Number: PHEH2011US05742

PATIENT
  Age: 76 Year
  Sex: Female

DRUGS (1)
  1. EXELON [Suspect]
     Route: 048

REACTIONS (6)
  - VOMITING [None]
  - STRESS CARDIOMYOPATHY [None]
  - AGITATION [None]
  - DIARRHOEA [None]
  - RESPIRATORY FAILURE [None]
  - ACCIDENTAL EXPOSURE [None]
